FAERS Safety Report 4773131-4 (Version None)
Quarter: 2005Q3

REPORT INFORMATION
  Report Type: 
  Country: None (occurrence: None)
  Receive Date: 20050915
  Receipt Date: 20050915
  Transmission Date: 20060218
  Serious: Yes (Other)
  Sender: FDA-Public Use
  Company Number: None

PATIENT
  Sex: Male
  Weight: 79.3795 kg

DRUGS (1)
  1. BOTOX     100 UNITS PER VIAL     ALLERGAN [Suspect]
     Indication: HEMIPARESIS
     Dosage: SEE IMAGE
     Dates: start: 20041027, end: 20041027

REACTIONS (4)
  - CONVULSION [None]
  - CYANOSIS [None]
  - LETHARGY [None]
  - POSTURE ABNORMAL [None]
